FAERS Safety Report 7728913-3 (Version None)
Quarter: 2011Q3

REPORT INFORMATION
  Report Type: 
  Country: None (occurrence: None)
  Receive Date: 20110831
  Receipt Date: 20110831
  Transmission Date: 20111222
  Serious: No
  Sender: FDA-Public Use
  Company Number: None

PATIENT
  Sex: Male
  Weight: 65.7716 kg

DRUGS (1)
  1. PRADAXA [Suspect]
     Dosage: TWICE DAILY
     Dates: start: 20110122, end: 20110601

REACTIONS (4)
  - BLOOD URINE PRESENT [None]
  - CHROMATURIA [None]
  - BALANCE DISORDER [None]
  - DYSARTHRIA [None]
